FAERS Safety Report 5305021-2 (Version None)
Quarter: 2007Q2

REPORT INFORMATION
  Report Type: 
  Country: None (occurrence: None)
  Receive Date: 20070416
  Receipt Date: 20070410
  Transmission Date: 20071010
  Serious: Yes (Life-Threatening, Disabling)
  Sender: FDA-Public Use
  Company Number: OSCN-PR-0704S-0163

PATIENT
  Sex: Female

DRUGS (1)
  1. OMNISCAN [Suspect]
     Indication: RENAL TRANSPLANT
     Dosage: NR, SINGLE DOSE, I.V.
     Route: 042
     Dates: start: 20050825, end: 20050825

REACTIONS (2)
  - INJURY [None]
  - NEPHROGENIC FIBROSING DERMOPATHY [None]
